FAERS Safety Report 8474939-4 (Version None)
Quarter: 2012Q2

REPORT INFORMATION
  Report Type: 
  Country: None (occurrence: None)
  Receive Date: 20120628
  Receipt Date: 20120625
  Transmission Date: 20120825
  Serious: Yes (Other)
  Sender: FDA-Public Use
  Company Number: PHEH2012US012628

PATIENT
  Age: 70 Year
  Sex: Female
  Weight: 95 kg

DRUGS (1)
  1. EXELON [Suspect]
     Dosage: 9.5 MG DAILY
     Route: 062
     Dates: start: 20120601

REACTIONS (2)
  - FALL [None]
  - UPPER LIMB FRACTURE [None]
